FAERS Safety Report 4399355-6 (Version None)
Quarter: 2004Q3

REPORT INFORMATION
  Report Type: 
  Country: None (occurrence: None)
  Receive Date: 20040716
  Receipt Date: 20040712
  Transmission Date: 20050211
  Serious: Yes (Other)
  Sender: FDA-Public Use
  Company Number: US-BRISTOL-MYERS SQUIBB COMPANY-12638417

PATIENT
  Age: 23 Year
  Sex: Male
  Weight: 54 kg

DRUGS (2)
  1. ERBITUX [Suspect]
  2. IRINOTECAN [Concomitant]

REACTIONS (4)
  - OEDEMA [None]
  - RASH [None]
  - RASH PUSTULAR [None]
  - SWELLING [None]
